FAERS Safety Report 8823457 (Version 4)
Quarter: 2012Q4

REPORT INFORMATION
  Report Type: 
  Country: US (occurrence: US)
  Receive Date: 20121003
  Receipt Date: 20121019
  Transmission Date: 20130627
  Serious: No
  Sender: FDA-Public Use
  Company Number: US-ASTRAZENECA-2012SE73540

PATIENT
  Age: 31 Year
  Sex: Female

DRUGS (5)
  1. SYMBICORT PMDI [Suspect]
     Indication: ASTHMA
     Dosage: 160/4.5 MCG, TWO TIMES A DAY
     Route: 055
  2. FLOVENT [Concomitant]
     Indication: ASTHMA
  3. SINGULAIR [Concomitant]
  4. ADVAIR [Concomitant]
  5. FLONASE [Concomitant]

REACTIONS (8)
  - Asthma [Unknown]
  - Dyspnoea [Unknown]
  - Activities of daily living impaired [Unknown]
  - Migraine [Unknown]
  - Fatigue [Unknown]
  - Vocal cord disorder [Unknown]
  - Cough [Unknown]
  - Dysphonia [Unknown]
